FAERS Safety Report 8811977 (Version 5)
Quarter: 2012Q4

REPORT INFORMATION
  Report Type: Report from Study
  Country: DE (occurrence: DE)
  Receive Date: 20120927
  Receipt Date: 20121119
  Transmission Date: 20130627
  Serious: Yes (Hospitalization)
  Sender: FDA-Public Use
  Company Number: DE-UCBSA-067388

PATIENT
  Age: 45 Year
  Sex: Male
  Weight: 88 kg

DRUGS (11)
  1. NEUPRO [Suspect]
     Indication: PARKINSON^S DISEASE
     Route: 062
     Dates: start: 20100711, end: 20100724
  2. NEUPRO [Suspect]
     Indication: PARKINSON^S DISEASE
     Route: 062
     Dates: start: 20100725, end: 20100902
  3. NEUPRO [Suspect]
     Indication: PARKINSON^S DISEASE
     Route: 062
     Dates: start: 20100903, end: 20100928
  4. NEUPRO [Suspect]
     Indication: PARKINSON^S DISEASE
     Route: 062
     Dates: start: 20100929, end: 20111019
  5. NEUPRO [Suspect]
     Indication: PARKINSON^S DISEASE
     Route: 062
     Dates: start: 20111020, end: 20120502
  6. NEUPRO [Suspect]
     Indication: PARKINSON^S DISEASE
     Route: 062
     Dates: start: 20120503, end: 20120509
  7. NEUPRO [Suspect]
     Indication: PARKINSON^S DISEASE
     Route: 062
     Dates: start: 20120510
  8. AZILECT [Concomitant]
     Indication: PARKINSON^S DISEASE
     Dates: start: 20100209
  9. INDOMETACIN SUPP [Concomitant]
     Indication: PAIN
     Dosage: 100 MG
     Dates: start: 20100318
  10. DOMPERIDON [Concomitant]
     Indication: PROPHYLAXIS
     Dates: start: 20100318
  11. TAMSUBLOC [Concomitant]
     Indication: MICTURITION DISORDER
     Dates: start: 20120131, end: 20120502

REACTIONS (1)
  - Micturition disorder [Not Recovered/Not Resolved]
